FAERS Safety Report 8607235-2 (Version None)
Quarter: 2012Q3

REPORT INFORMATION
  Report Type: 
  Country: None (occurrence: None)
  Receive Date: 20120821
  Receipt Date: 20120814
  Transmission Date: 20120928
  Serious: No
  Sender: FDA-Public Use
  Company Number: US-BIOGENIDEC-2012BI031570

PATIENT
  Sex: Female

DRUGS (3)
  1. AVONEX [Suspect]
     Indication: MULTIPLE SCLEROSIS
     Route: 030
     Dates: start: 20000425, end: 20030101
  2. AVONEX [Suspect]
     Route: 030
     Dates: start: 20030101, end: 20120101
  3. AVONEX [Suspect]
     Route: 030
     Dates: start: 20120101

REACTIONS (5)
  - URINARY INCONTINENCE [None]
  - INCISION SITE ERYTHEMA [None]
  - BODY TEMPERATURE INCREASED [None]
  - PYREXIA [None]
  - BURSITIS [None]
